FAERS Safety Report 7097285-2 (Version None)
Quarter: 2010Q4

REPORT INFORMATION
  Report Type: 
  Country: None (occurrence: None)
  Receive Date: 20101111
  Receipt Date: 20101029
  Transmission Date: 20110411
  Serious: Yes (Hospitalization, Other)
  Sender: FDA-Public Use
  Company Number: ES-ELI_LILLY_AND_COMPANY-ES201011000342

PATIENT
  Sex: Female
  Weight: 70 kg

DRUGS (8)
  1. FORTEO [Suspect]
     Indication: OSTEOPOROSIS
     Dosage: 20 UG, DAILY (1/D)
     Route: 058
     Dates: start: 20100824
  2. URBASON /00049601/ [Concomitant]
     Indication: ARTERITIS
     Dosage: 16 MG, DAILY (1/D)
     Route: 048
  3. LYRICA [Concomitant]
     Indication: PAIN
     Dosage: 150 MG, DAILY (1/D)
     Route: 048
  4. EUTIROX [Concomitant]
     Indication: HYPOTHYROIDISM
     Dosage: 1 D/F, DAILY (1/D)
     Route: 048
  5. DEANXIT [Concomitant]
     Indication: DEPRESSION
     Dosage: 1 D/F, 2/D
     Route: 048
  6. OMEPRAZOLE [Concomitant]
     Indication: GASTRIC DISORDER
     Dosage: 20 MG, 2/D
     Route: 048
  7. NOLOTIL [Concomitant]
     Indication: PAIN
     Dosage: 1 D/F, 4/D
     Route: 048
  8. TERMALGIN [Concomitant]
     Indication: PAIN
     Dosage: 1 D/F, 4/D
     Route: 048

REACTIONS (2)
  - HIP ARTHROPLASTY [None]
  - INFECTION [None]
